FAERS Safety Report 18188321 (Version 1)
Quarter: 2020Q3

REPORT INFORMATION
  Report Type: Report from Study
  Country: None (occurrence: JP)
  Receive Date: 20200824
  Receipt Date: 20200824
  Transmission Date: 20201103
  Serious: Yes (Other)
  Sender: FDA-Public Use
  Company Number: JP-ABBVIE-20K-087-3536644-00

PATIENT
  Age: 76 Year
  Sex: Female
  Weight: 47.2 kg

DRUGS (12)
  1. VENCLEXTA [Suspect]
     Active Substance: VENETOCLAX
     Indication: B-CELL SMALL LYMPHOCYTIC LYMPHOMA REFRACTORY
     Route: 048
     Dates: start: 20200130, end: 2020
  2. VENCLEXTA [Suspect]
     Active Substance: VENETOCLAX
     Route: 048
     Dates: start: 20200215, end: 202002
  3. APIXABAN [Concomitant]
     Active Substance: APIXABAN
     Indication: B-CELL SMALL LYMPHOCYTIC LYMPHOMA RECURRENT
     Dates: start: 20190815
  4. ACICLOVIR [Concomitant]
     Active Substance: ACYCLOVIR
     Indication: INFECTION PROPHYLAXIS
     Dates: start: 20191212
  5. FLUCONAZOLE. [Concomitant]
     Active Substance: FLUCONAZOLE
     Indication: INFECTION PROPHYLAXIS
     Dates: start: 20200201
  6. VENCLEXTA [Suspect]
     Active Substance: VENETOCLAX
     Indication: B-CELL SMALL LYMPHOCYTIC LYMPHOMA RECURRENT
     Route: 048
     Dates: start: 20200206, end: 202002
  7. VENCLEXTA [Suspect]
     Active Substance: VENETOCLAX
     Route: 048
     Dates: start: 20200213, end: 202002
  8. AMIODARONE HYDROCHLORIDE. [Concomitant]
     Active Substance: AMIODARONE HYDROCHLORIDE
     Indication: B-CELL SMALL LYMPHOCYTIC LYMPHOMA RECURRENT
     Dates: start: 20190706
  9. AMIODARONE HYDROCHLORIDE. [Concomitant]
     Active Substance: AMIODARONE HYDROCHLORIDE
     Indication: B-CELL SMALL LYMPHOCYTIC LYMPHOMA REFRACTORY
  10. VENCLEXTA [Suspect]
     Active Substance: VENETOCLAX
     Route: 048
     Dates: start: 20200226, end: 2020
  11. VENCLEXTA [Suspect]
     Active Substance: VENETOCLAX
     Route: 048
     Dates: start: 20200304
  12. APIXABAN [Concomitant]
     Active Substance: APIXABAN
     Indication: B-CELL SMALL LYMPHOCYTIC LYMPHOMA REFRACTORY

REACTIONS (1)
  - Pulmonary oedema [Recovered/Resolved]

NARRATIVE: CASE EVENT DATE: 20200203
